FAERS Safety Report 5622985-8 (Version None)
Quarter: 2008Q1

REPORT INFORMATION
  Report Type: 
  Country: None (occurrence: None)
  Receive Date: 20080207
  Receipt Date: 20080131
  Transmission Date: 20080703
  Serious: Yes (Hospitalization)
  Sender: FDA-Public Use
  Company Number: 163-20785-07120875

PATIENT
  Age: 67 Year
  Sex: Female

DRUGS (2)
  1. THALOMID [Suspect]
     Indication: MULTIPLE MYELOMA
     Dosage: 200 MG, DAILY, ORAL : 150 MG, DAILY, ORAL
     Route: 048
     Dates: start: 20070522, end: 20070911
  2. THALOMID [Suspect]
     Indication: MULTIPLE MYELOMA
     Dosage: 200 MG, DAILY, ORAL : 150 MG, DAILY, ORAL
     Route: 048
     Dates: start: 20071119

REACTIONS (1)
  - FEMUR FRACTURE [None]
